FAERS Safety Report 10285945 (Version 1)
Quarter: 2014Q3

REPORT INFORMATION
  Report Type: Report from Study
  Country: MX (occurrence: MX)
  Receive Date: 20140709
  Receipt Date: 20140709
  Transmission Date: 20150326
  Serious: Yes (Other)
  Sender: FDA-Public Use
  Company Number: PHHY2014MX083177

PATIENT
  Age: 61 Year
  Sex: Female

DRUGS (6)
  1. LOSARTAN [Concomitant]
     Active Substance: LOSARTAN
     Indication: BLOOD PRESSURE
     Dosage: 2 DF, DAILY
     Dates: start: 201307
  2. CARBAMAZEPINE. [Concomitant]
     Active Substance: CARBAMAZEPINE
     Indication: DIABETES MELLITUS
     Dosage: 1 DF, AT NIGHT
     Dates: start: 201307
  3. PARACETAMOL [Concomitant]
     Active Substance: ACETAMINOPHEN
     Indication: PAIN
     Dosage: 500 MG, PRN
  4. TASIGNA [Suspect]
     Active Substance: NILOTINIB
     Indication: LEUKAEMIA
     Dosage: 2 DF, UNK
     Route: 048
     Dates: start: 201403
  5. DASATINIB [Concomitant]
     Active Substance: DASATINIB
  6. TASIGNA [Suspect]
     Active Substance: NILOTINIB
     Dosage: 2 DF, UNK
     Route: 048

REACTIONS (14)
  - Blood glucose increased [Not Recovered/Not Resolved]
  - Eructation [Recovered/Resolved]
  - Pain [Recovered/Resolved]
  - Loose tooth [Not Recovered/Not Resolved]
  - Dyspepsia [Recovered/Resolved]
  - Swelling face [Recovered/Resolved]
  - Vomiting [Recovered/Resolved]
  - Headache [Recovered/Resolved]
  - Muscle spasms [Not Recovered/Not Resolved]
  - Food interaction [Unknown]
  - Feeling abnormal [Recovered/Resolved]
  - Mastication disorder [Not Recovered/Not Resolved]
  - Eye pain [Recovered/Resolved]
  - Nausea [Recovered/Resolved]

NARRATIVE: CASE EVENT DATE: 201403
